FAERS Safety Report 25808612 (Version 1)
Quarter: 2025Q3

REPORT INFORMATION
  Report Type: Report from Study
  Country: US (occurrence: US)
  Receive Date: 20250916
  Receipt Date: 20250916
  Transmission Date: 20251021
  Serious: Yes (Death, Hospitalization)
  Sender: OTSUKA
  Company Number: US-MMM-Otsuka-LAO8HWEI

PATIENT
  Age: 90 Year
  Sex: Female

DRUGS (1)
  1. BREXPIPRAZOLE [Suspect]
     Active Substance: BREXPIPRAZOLE
     Indication: Major depression
     Dosage: 0.25 MG, DAILY (1 TABLET)
     Route: 065

REACTIONS (4)
  - Death [Fatal]
  - Ulcer [Unknown]
  - Urinary tract infection [Unknown]
  - Underdose [Unknown]

NARRATIVE: CASE EVENT DATE: 20250425
